FAERS Safety Report 4503465-X (Version None)
Quarter: 2004Q4

REPORT INFORMATION
  Report Type: 
  Country: None (occurrence: None)
  Receive Date: 20041116
  Receipt Date: 20041105
  Transmission Date: 20050328
  Serious: Yes (Hospitalization)
  Sender: FDA-Public Use
  Company Number: 2004241453FR

PATIENT
  Age: 54 Year
  Sex: Female
  Weight: 45 kg

DRUGS (2)
  1. ZYVOXID (LINEZOLID)TABLET [Suspect]
     Indication: STAPHYLOCOCCAL INFECTION
     Dosage: 1200 MG, DAILY, ORAL
     Route: 048
     Dates: start: 20040917, end: 20041008
  2. RIFAMPICIN [Suspect]
     Indication: STAPHYLOCOCCAL INFECTION
     Dosage: 600 MG, DAILY, ORAL
     Route: 048
     Dates: start: 20040917, end: 20041012

REACTIONS (12)
  - BILIRUBIN CONJUGATED INCREASED [None]
  - BLOOD ALKALINE PHOSPHATASE INCREASED [None]
  - BLOOD BILIRUBIN UNCONJUGATED INCREASED [None]
  - BLOOD LACTATE DEHYDROGENASE INCREASED [None]
  - C-REACTIVE PROTEIN INCREASED [None]
  - COOMBS POSITIVE HAEMOLYTIC ANAEMIA [None]
  - GAMMA-GLUTAMYLTRANSFERASE INCREASED [None]
  - GLOBULINS DECREASED [None]
  - HAPTOGLOBIN DECREASED [None]
  - LABORATORY TEST ABNORMAL [None]
  - RETICULOCYTE COUNT INCREASED [None]
  - WHITE BLOOD CELL COUNT INCREASED [None]
